FAERS Safety Report 19765954 (Version 1)
Quarter: 2021Q3

REPORT INFORMATION
  Report Type: Spontaneous
  Country: US (occurrence: US)
  Receive Date: 20210830
  Receipt Date: 20210830
  Transmission Date: 20211014
  Serious: No
  Sender: FDA-Public Use
  Company Number: US-ANIPHARMA-2020-US-023051

PATIENT
  Age: 80 Year
  Sex: Female
  Weight: 72.58 kg

DRUGS (5)
  1. ARIMIDEX [Suspect]
     Active Substance: ANASTROZOLE
     Indication: BREAST CANCER
     Dosage: ONE TABLET PER DAY
     Route: 048
     Dates: start: 20200711, end: 20201110
  2. LOSARTAN + HCTZ [Concomitant]
     Active Substance: HYDROCHLOROTHIAZIDE\LOSARTAN POTASSIUM
     Route: 065
  3. ASPIRIN. [Concomitant]
     Active Substance: ASPIRIN
     Route: 065
  4. TRICOR [Concomitant]
     Active Substance: FENOFIBRATE
     Route: 065
  5. LEVOTHYROXINE. [Concomitant]
     Active Substance: LEVOTHYROXINE
     Route: 065

REACTIONS (6)
  - Arthritis [Recovering/Resolving]
  - Arthralgia [Recovering/Resolving]
  - Peripheral swelling [Recovering/Resolving]
  - Joint swelling [Recovering/Resolving]
  - Joint swelling [Recovering/Resolving]
  - Skin tightness [Recovering/Resolving]

NARRATIVE: CASE EVENT DATE: 20201030
